FAERS Safety Report 19645759 (Version 1)
Quarter: 2021Q3

REPORT INFORMATION
  Report Type: Spontaneous
  Country: CA (occurrence: CA)
  Receive Date: 20210801
  Receipt Date: 20210801
  Transmission Date: 20211014
  Serious: No
  Sender: FDA-Public Use
  Company Number: None

PATIENT
  Age: 51 Year
  Sex: Female

DRUGS (9)
  1. FOQUEST 100MG [Concomitant]
  2. ABILIFY [Suspect]
     Active Substance: ARIPIPRAZOLE
     Indication: BIPOLAR DISORDER
     Dosage: ?          QUANTITY:1 INJECTION(S);OTHER FREQUENCY:ONCE A MONTH;?
     Route: 030
     Dates: start: 20160201, end: 20210701
  3. ZOPICLONE 7.5MG [Concomitant]
     Active Substance: ZOPICLONE
  4. COLLAGEN [Concomitant]
     Active Substance: COLLAGEN
  5. BLACK COHOSH [Concomitant]
     Active Substance: BLACK COHOSH
  6. MAGNESIUM [Concomitant]
     Active Substance: MAGNESIUM
  7. ESTROGEN .5MG [Concomitant]
  8. CLONAZEPAM .25MG UNKNOWN GENERIC [Concomitant]
     Active Substance: CLONAZEPAM
  9. PROGESTERONE 200MG [Concomitant]

REACTIONS (4)
  - Immobile [None]
  - Muscle tightness [None]
  - Injection site reaction [None]
  - Muscle spasms [None]

NARRATIVE: CASE EVENT DATE: 20210604
